FAERS Safety Report 8521668-4 (Version None)
Quarter: 2012Q3

REPORT INFORMATION
  Report Type: 
  Country: None (occurrence: None)
  Receive Date: 20120719
  Receipt Date: 20120717
  Transmission Date: 20120928
  Serious: Yes (Other)
  Sender: FDA-Public Use
  Company Number: PHHY2012BR053491

PATIENT
  Sex: Female

DRUGS (4)
  1. DIOVAN HCT [Suspect]
     Indication: HYPERTENSION
     Dosage: 1 DF (VALS 160 MG, HYDR 12.5 MG), DAILY
  2. DIOVAN HCT [Suspect]
     Dosage: 1 DF (VALS 320 MG, HYDR 12.5 MG), PRN
  3. CAPTOPRIL [Concomitant]
     Dosage: 1 DF
     Route: 060
  4. DIOVAN HCT [Suspect]
     Dosage: 1 DF (VALS 160 MG, HYDR 12.5 MG), UNK

REACTIONS (6)
  - ANGINA PECTORIS [None]
  - DYSPNOEA [None]
  - BLOOD PRESSURE INCREASED [None]
  - FATIGUE [None]
  - CHEST PAIN [None]
  - DRUG INEFFECTIVE [None]
